FAERS Safety Report 4472475-3 (Version None)
Quarter: 2004Q4

REPORT INFORMATION
  Report Type: 
  Country: None (occurrence: None)
  Receive Date: 20041007
  Receipt Date: 20040924
  Transmission Date: 20050328
  Serious: Yes (Hospitalization)
  Sender: FDA-Public Use
  Company Number: CERZ-10646

PATIENT
  Age: 61 Year
  Sex: Female
  Weight: 70 kg

DRUGS (1)
  1. CEREZYME [Suspect]
     Indication: GAUCHER'S DISEASE
     Dosage: 3800 UNITS Q2WKS IV
     Route: 042
     Dates: start: 20040401

REACTIONS (5)
  - B-CELL LYMPHOMA [None]
  - CONDITION AGGRAVATED [None]
  - FATIGUE [None]
  - SPLENIC LESION [None]
  - SPLENOMEGALY [None]
